FAERS Safety Report 15344137 (Version 1)
Quarter: 2018Q3

REPORT INFORMATION
  Report Type: Spontaneous
  Country: JP (occurrence: JP)
  Receive Date: 20180903
  Receipt Date: 20180903
  Transmission Date: 20181010
  Serious: Yes (Death)
  Sender: FDA-Public Use
  Company Number: JP-PFIZER INC-2018352345

PATIENT
  Age: 60 Year
  Sex: Male

DRUGS (2)
  1. IMMUNOGLOBULIN HUMAN NORMAL [Suspect]
     Active Substance: HUMAN IMMUNOGLOBULIN G
     Indication: DERMATOMYOSITIS
     Dosage: UNK
  2. METHYLPREDNISOLONE SODIUM SUCCINATE. [Suspect]
     Active Substance: METHYLPREDNISOLONE SODIUM SUCCINATE
     Indication: DERMATOMYOSITIS
     Dosage: 1 G, UNK (PULSE)

REACTIONS (3)
  - Drug ineffective [Fatal]
  - Pneumonia [Fatal]
  - Cardiac failure [Fatal]
